FAERS Safety Report 11747984 (Version 4)
Quarter: 2016Q2

REPORT INFORMATION
  Report Type: Spontaneous
  Country: US (occurrence: US)
  Receive Date: 20151117
  Receipt Date: 20160520
  Transmission Date: 20160815
  Serious: Yes (Hospitalization, Other)
  Sender: FDA-Public Use
  Company Number: US-GLAXOSMITHKLINE-US2015GSK159341

PATIENT
  Age: 58 Year
  Sex: Male

DRUGS (4)
  1. VERAPAMIL ER [Concomitant]
     Active Substance: VERAPAMIL HYDROCHLORIDE
  2. FLOLAN [Suspect]
     Active Substance: EPOPROSTENOL SODIUM
     Indication: PULMONARY HYPERTENSION
     Dosage: UNK
     Route: 042
     Dates: start: 20031016
  3. XARELTO [Concomitant]
     Active Substance: RIVAROXABAN
  4. FLOLAN [Suspect]
     Active Substance: EPOPROSTENOL SODIUM
     Dosage: 10 NG/KG/MINUTE, CONTINUOUS
     Route: 042
     Dates: start: 20031016

REACTIONS (3)
  - Central venous catheterisation [Unknown]
  - Device breakage [Unknown]
  - Hospitalisation [Unknown]

NARRATIVE: CASE EVENT DATE: 20160502
